FAERS Safety Report 7513724-4 (Version None)
Quarter: 2011Q2

REPORT INFORMATION
  Report Type: 
  Country: None (occurrence: None)
  Receive Date: 20110531
  Receipt Date: 20110526
  Transmission Date: 20111010
  Serious: Yes (Death)
  Sender: FDA-Public Use
  Company Number: PHHY2011GB46202

PATIENT
  Age: 23 Year
  Sex: Male

DRUGS (8)
  1. DIHYDROCODEINE BITARTRATE INJ [Suspect]
  2. OXAZEPAM [Concomitant]
  3. TEMAZEPAM [Concomitant]
  4. DMD [Concomitant]
  5. METHADONE HCL [Suspect]
  6. DIAZEPAM [Concomitant]
  7. MDMA [Concomitant]
  8. MDA [Concomitant]

REACTIONS (4)
  - SOMNOLENCE [None]
  - UNRESPONSIVE TO STIMULI [None]
  - TOXICITY TO VARIOUS AGENTS [None]
  - NASOPHARYNGITIS [None]
